FAERS Safety Report 7711243-3 (Version None)
Quarter: 2011Q3

REPORT INFORMATION
  Report Type: 
  Country: None (occurrence: None)
  Receive Date: 20110826
  Receipt Date: 20110816
  Transmission Date: 20111222
  Serious: No
  Sender: FDA-Public Use
  Company Number: US-BIOGENIDEC-2011BI031312

PATIENT
  Age: 62 Year
  Sex: Female

DRUGS (2)
  1. AVONEX [Suspect]
     Route: 030
     Dates: start: 20060101
  2. AVONEX [Suspect]
     Indication: MULTIPLE SCLEROSIS
     Route: 030
     Dates: start: 20110710

REACTIONS (8)
  - NOCTURIA [None]
  - CHILLS [None]
  - HYPERHIDROSIS [None]
  - ASTHENIA [None]
  - INSOMNIA [None]
  - POLLAKIURIA [None]
  - CRYING [None]
  - PARAESTHESIA [None]
